FAERS Safety Report 7946240-6 (Version None)
Quarter: 2011Q4

REPORT INFORMATION
  Report Type: 
  Country: None (occurrence: None)
  Receive Date: 20111123
  Receipt Date: 20111118
  Transmission Date: 20120403
  Serious: Yes (Life-Threatening, Hospitalization)
  Sender: FDA-Public Use
  Company Number: 1113890

PATIENT
  Age: 67 Year
  Sex: Female
  Weight: 72 kg

DRUGS (13)
  1. MELOXICAM [Concomitant]
  2. TRAMADOL HCL [Concomitant]
  3. MEROPENEM [Suspect]
     Indication: INTERVERTEBRAL DISCITIS
     Dosage: 1 G GRAM(S), 1 DAY, INTRAVENOUS (NOT OTHERWISE SPECIFIED)
     Route: 042
     Dates: start: 20111015, end: 20111019
  4. GENTAMICIN [Concomitant]
  5. AMOXICILLIN AND CLAVULANATE POTASSIUM [Suspect]
     Indication: INTERVERTEBRAL DISCITIS
     Dosage: 1.2 G GRAM(S), 1 DAY, INTRAVENOUS (NOT OTHERWISE SPECIFIED)
     Route: 042
     Dates: start: 20111015, end: 20111019
  6. CIPROFLOXACIN [Concomitant]
  7. ALLOPURINOL [Concomitant]
  8. FLOXACILLIN SODIUM [Concomitant]
  9. SIMVASTATIN [Concomitant]
  10. (FUSIDATE SODIUM) [Concomitant]
  11. DALTEPARIN SODIUM [Concomitant]
  12. ACETAMINOPHEN [Concomitant]
  13. RIFAMPICIN [Concomitant]

REACTIONS (2)
  - THROMBOCYTOPENIA [None]
  - RASH [None]
